FAERS Safety Report 4445643-4 (Version None)
Quarter: 2004Q3

REPORT INFORMATION
  Report Type: 
  Country: None (occurrence: None)
  Receive Date: 20040802
  Receipt Date: 20040519
  Transmission Date: 20050211
  Serious: No
  Sender: FDA-Public Use
  Company Number: 2004-116705-NL

PATIENT
  Age: 32 Year
  Sex: Female
  Weight: 61.4 kg

DRUGS (4)
  1. NUVARING [Suspect]
     Indication: CONTRACEPTION
     Dosage: DF DAILY VAGINAL
     Route: 067
     Dates: start: 20040425
  2. PHENTERMINE [Concomitant]
  3. CALCIUM [Concomitant]
  4. VITAMIN C [Concomitant]

REACTIONS (2)
  - OLIGOMENORRHOEA [None]
  - VULVOVAGINAL DISCOMFORT [None]
